FAERS Safety Report 15275885 (Version 1)
Quarter: 2018Q3

REPORT INFORMATION
  Report Type: Report from Study
  Country: GB (occurrence: GB)
  Receive Date: 20180814
  Receipt Date: 20180814
  Transmission Date: 20181010
  Serious: Yes (Other)
  Sender: FDA-Public Use
  Company Number: GB-MYLANLABS-2018M1061435

PATIENT
  Sex: Female

DRUGS (1)
  1. NITROFURANTOIN. [Suspect]
     Active Substance: NITROFURANTOIN
     Indication: LOWER URINARY TRACT SYMPTOMS
     Dosage: INTERMITTENTLY EXPOSED FOR OVER 8 YEARS
     Route: 065

REACTIONS (2)
  - Pneumonitis [Unknown]
  - Fibrosis [Unknown]
